FAERS Safety Report 5646178-3 (Version None)
Quarter: 2008Q1

REPORT INFORMATION
  Report Type: 
  Country: None (occurrence: None)
  Receive Date: 20080229
  Receipt Date: 20080215
  Transmission Date: 20080703
  Serious: Yes (Other)
  Sender: FDA-Public Use
  Company Number: US-PFIZER INC-2008017776

PATIENT

DRUGS (1)
  1. LYRICA [Suspect]

REACTIONS (4)
  - CELLULITIS [None]
  - DIABETES MELLITUS [None]
  - PITTING OEDEMA [None]
  - WHEELCHAIR USER [None]
